FAERS Safety Report 9641632 (Version 2)
Quarter: 2013Q4

REPORT INFORMATION
  Report Type: Spontaneous
  Country: JP (occurrence: JP)
  Receive Date: 20131023
  Receipt Date: 20131127
  Transmission Date: 20140711
  Serious: Yes (Hospitalization)
  Sender: FDA-Public Use
  Company Number: JP-GLAXOSMITHKLINE-B0933765A

PATIENT
  Age: 64 Year
  Sex: Female

DRUGS (2)
  1. ZOVIRAX [Suspect]
     Indication: GENITAL HERPES
     Dosage: 250MG TWICE PER DAY
     Route: 042
     Dates: start: 20130909, end: 20130912
  2. VALTREX [Suspect]
     Indication: GENITAL HERPES
     Dosage: 1000MG PER DAY
     Route: 048
     Dates: start: 20130910, end: 20130913

REACTIONS (5)
  - Altered state of consciousness [Recovered/Resolved]
  - Toxic encephalopathy [Recovering/Resolving]
  - Abnormal behaviour [Unknown]
  - Feeling abnormal [Unknown]
  - Speech disorder [Unknown]
